FAERS Safety Report 5130649-2 (Version None)
Quarter: 2006Q4

REPORT INFORMATION
  Report Type: 
  Country: None (occurrence: None)
  Receive Date: 20061018
  Receipt Date: 20061018
  Transmission Date: 20070319
  Serious: No
  Sender: FDA-Public Use
  Company Number: None

PATIENT
  Age: 47 Year
  Sex: Female
  Weight: 49.8957 kg

DRUGS (1)
  1. ZANTAC [Suspect]
     Indication: DYSPEPSIA
     Dosage: 150 MG  Q12H  PO
     Route: 048
     Dates: start: 20061015, end: 20061016

REACTIONS (3)
  - DISCOMFORT [None]
  - PRURITUS [None]
  - RASH [None]
